FAERS Safety Report 10751694 (Version 1)
Quarter: 2015Q1

REPORT INFORMATION
  Report Type: Spontaneous
  Country: GH (occurrence: GH)
  Receive Date: 20150130
  Receipt Date: 20150130
  Transmission Date: 20150721
  Serious: Yes (Hospitalization, Other)
  Sender: FDA-Public Use
  Company Number: GH-ACTAVIS-2015-00771

PATIENT
  Age: 49 Year
  Sex: Female

DRUGS (2)
  1. STELAZINE [Concomitant]
     Active Substance: TRIFLUOPERAZINE HYDROCHLORIDE
     Indication: SCHIZOAFFECTIVE DISORDER
     Dosage: 2 MG, BID
     Route: 065
  2. CLOBETASOL [Suspect]
     Active Substance: CLOBETASOL
     Indication: PRODUCT USED FOR UNKNOWN INDICATION
     Dosage: UNK
     Route: 003

REACTIONS (12)
  - Hypertension [Unknown]
  - Heart rate increased [None]
  - Polyuria [None]
  - Haemoglobin decreased [None]
  - Increased tendency to bruise [Unknown]
  - Postoperative wound infection [Unknown]
  - Tubulointerstitial nephritis [None]
  - Substance-induced psychotic disorder [Unknown]
  - Drug abuse [Unknown]
  - Post procedural haemorrhage [None]
  - Acute kidney injury [None]
  - Skin necrosis [None]
